FAERS Safety Report 14290374 (Version 2)
Quarter: 2018Q1

REPORT INFORMATION
  Report Type: Report from Study
  Country: CO (occurrence: CO)
  Receive Date: 20171215
  Receipt Date: 20180226
  Transmission Date: 20180509
  Serious: Yes (Hospitalization, Other)
  Sender: FDA-Public Use
  Company Number: CO-BAYER-2017-230107

PATIENT
  Age: 85 Year
  Sex: Male

DRUGS (2)
  1. NEXAVAR [Suspect]
     Active Substance: SORAFENIB
     Indication: HEPATOCELLULAR CARCINOMA
     Dosage: UNK
     Route: 048
  2. NEXAVAR [Suspect]
     Active Substance: SORAFENIB
     Indication: HEPATOCELLULAR CARCINOMA
     Dosage: 2 DF, BID
     Route: 048
     Dates: start: 20130828, end: 20151015

REACTIONS (3)
  - Underweight [Not Recovered/Not Resolved]
  - Hepatocellular carcinoma [None]
  - Bile duct stone [Recovering/Resolving]

NARRATIVE: CASE EVENT DATE: 20171108
